FAERS Safety Report 4827569-7 (Version None)
Quarter: 2005Q4

REPORT INFORMATION
  Report Type: 
  Country: None (occurrence: None)
  Receive Date: 20051114
  Receipt Date: 20051103
  Transmission Date: 20060501
  Serious: Yes (Hospitalization, Other)
  Sender: FDA-Public Use
  Company Number: PHBS2005BR16304

PATIENT
  Sex: Male
  Weight: 89 kg

DRUGS (4)
  1. DIOVAN HCT [Suspect]
     Indication: HYPERTENSION
     Dosage: 80/12.5 MG/DAY
     Route: 048
  2. ASPIRIN [Concomitant]
  3. LASIPIL [Concomitant]
     Indication: HYPERTENSION
  4. DIOVAN HCT [Suspect]

REACTIONS (6)
  - AGITATION [None]
  - BLOOD PRESSURE INCREASED [None]
  - CARDIOMEGALY [None]
  - DIZZINESS [None]
  - MENISCUS OPERATION [None]
  - STREPTOCOCCAL INFECTION [None]
